FAERS Safety Report 8966416 (Version 1)
Quarter: 2012Q4

REPORT INFORMATION
  Report Type: 
  Country: GB (occurrence: GB)
  Receive Date: 20121214
  Receipt Date: 20121214
  Transmission Date: 20130627
  Serious: Yes (Disabling)
  Sender: FDA-Public Use
  Company Number: GB-GLAXOSMITHKLINE-B0851746A

PATIENT
  Age: 39 Year
  Sex: Female
  Weight: 70 kg

DRUGS (8)
  1. LAMOTRIGINE [Suspect]
     Dates: start: 20120903
  2. CITALOPRAM [Concomitant]
     Dates: start: 20120903, end: 20121203
  3. ULTRABASE [Concomitant]
     Dates: start: 20121024, end: 20121121
  4. FLUCLOXACILLIN [Concomitant]
     Dates: start: 20121119, end: 20121129
  5. AMOXICILLIN\CLAVULANATE POTASSIUM [Concomitant]
     Dates: start: 20121123, end: 20121130
  6. FUSIDIC ACID [Concomitant]
     Dates: start: 20121123, end: 20121130
  7. CETIRIZINE [Concomitant]
     Dates: start: 20121126
  8. CLOBETASONE BUTYRATE [Concomitant]
     Dates: start: 20121126

REACTIONS (2)
  - Rash generalised [Not Recovered/Not Resolved]
  - Scab [Not Recovered/Not Resolved]
